FAERS Safety Report 11994034 (Version 1)
Quarter: 2016Q1

REPORT INFORMATION
  Report Type: Spontaneous
  Country: US (occurrence: US)
  Receive Date: 20160203
  Receipt Date: 20160203
  Transmission Date: 20160526
  Serious: No
  Sender: FDA-Public Use
  Company Number: US-UCBSA-2015027453

PATIENT
  Sex: Male

DRUGS (2)
  1. KEPPRA [Suspect]
     Active Substance: LEVETIRACETAM
     Indication: SEIZURE
  2. FELBAMATE. [Concomitant]
     Active Substance: FELBAMATE
     Indication: SEIZURE

REACTIONS (2)
  - Dizziness [Unknown]
  - Lethargy [Unknown]
